FAERS Safety Report 4504833-2 (Version None)
Quarter: 2004Q3

REPORT INFORMATION
  Report Type: 
  Country: None (occurrence: None)
  Receive Date: 20040927
  Receipt Date: 20040723
  Transmission Date: 20050211
  Serious: No
  Sender: FDA-Public Use
  Company Number: USA040772170

PATIENT
  Age: 33 Year
  Sex: Male
  Weight: 114 kg

DRUGS (7)
  1. STRATTERA [Suspect]
     Indication: ATTENTION DEFICIT/HYPERACTIVITY DISORDER
     Dosage: 40 MG DAY
  2. LESCOL XL [Concomitant]
  3. GLUCOPHAGE XR (METFORMIN HYDROCHLORIDE) [Concomitant]
  4. GLUCOTROL XL [Concomitant]
  5. NIASPAN [Concomitant]
  6. DIOVAN [Concomitant]
  7. ACETYLSALICYLIC ACID SRT [Concomitant]

REACTIONS (3)
  - HYPERHIDROSIS [None]
  - NIGHTMARE [None]
  - PANIC REACTION [None]
